FAERS Safety Report 10531363 (Version 1)
Quarter: 2014Q4

REPORT INFORMATION
  Report Type: Spontaneous
  Country: FR (occurrence: FR)
  Receive Date: 20141021
  Receipt Date: 20141021
  Transmission Date: 20150529
  Serious: Yes (Other)
  Sender: FDA-Public Use
  Company Number: FR-WATSON-2014-22338

PATIENT
  Age: 63 Year
  Sex: Male

DRUGS (3)
  1. BACLOFEN (UNKNOWN) [Suspect]
     Active Substance: BACLOFEN
     Indication: ALCOHOL USE
     Dosage: 120 MG, DAILY
     Route: 065
  2. BACLOFEN (UNKNOWN) [Suspect]
     Active Substance: BACLOFEN
     Indication: OFF LABEL USE
  3. METFORMIN [Concomitant]
     Active Substance: METFORMIN HYDROCHLORIDE
     Indication: TYPE 2 DIABETES MELLITUS
     Dosage: 1700 MG, DAILY
     Route: 065

REACTIONS (8)
  - Withdrawal syndrome [Recovered/Resolved]
  - Vomiting [Unknown]
  - White blood cell count increased [Unknown]
  - Confusional state [Recovered/Resolved]
  - Hyperthermia [Unknown]
  - Off label use [Recovered/Resolved]
  - Agitation [Recovered/Resolved]
  - C-reactive protein increased [Unknown]
